FAERS Safety Report 13628268 (Version 1)
Quarter: 2017Q2

REPORT INFORMATION
  Report Type: Spontaneous
  Country: US (occurrence: US)
  Receive Date: 20170608
  Receipt Date: 20170608
  Transmission Date: 20170830
  Serious: Yes (Hospitalization)
  Sender: FDA-Public Use
  Company Number: None

PATIENT
  Age: 71 Year
  Sex: Male

DRUGS (2)
  1. GABAPENTIN. [Suspect]
     Active Substance: GABAPENTIN
     Indication: ANXIETY
     Route: 048
     Dates: start: 20170411, end: 20170530
  2. DIPHENHYDRAMINE. [Suspect]
     Active Substance: DIPHENHYDRAMINE
     Indication: SLEEP DISORDER
     Route: 048
     Dates: start: 20160612, end: 20170524

REACTIONS (5)
  - Lethargy [None]
  - Urinary tract infection [None]
  - Multiple drug therapy [None]
  - Fatigue [None]
  - Pneumonia aspiration [None]

NARRATIVE: CASE EVENT DATE: 20170530
